FAERS Safety Report 24701104 (Version 2)
Quarter: 2024Q4

REPORT INFORMATION
  Report Type: Spontaneous
  Country: IT (occurrence: IT)
  Receive Date: 20241205
  Receipt Date: 20241226
  Transmission Date: 20250115
  Serious: Yes (Hospitalization, Other)
  Sender: FRESENIUS KABI
  Company Number: None

PATIENT
  Age: 87 Year
  Sex: Female
  Weight: 63 kg

DRUGS (9)
  1. ONDANSETRON [Suspect]
     Active Substance: ONDANSETRON
     Indication: Nausea
     Dosage: ONDANSETRON 4MG IS ADMINISTERED INTRAVENOUSLY IN THE EMERGENCY ROOM.
     Route: 042
     Dates: start: 20241103, end: 20241103
  2. ELIQUIS [Suspect]
     Active Substance: APIXABAN
     Indication: Thrombosis prophylaxis
     Dosage: ELIQUIS 2.5MG: 1 TABLET AT 8:00 AND 1 TABLET AT 20:00.?THE DATE OF STARTING TO TAKE THE DRUG IS NOT
     Route: 048
  3. URAPIDIL [Suspect]
     Active Substance: URAPIDIL
     Indication: Hypertensive emergency
     Dosage: 10ML OF URAPIDIL IS ADMINISTERED IN THE EMERGENCY ROOM BY IV.
     Route: 042
     Dates: start: 20241103, end: 20241103
  4. AMLODIPINE [Concomitant]
     Active Substance: AMLODIPINE BESYLATE
     Indication: Hypertension
     Dosage: AMLODIPINE: 10MG AT 8:00.?NOT KNOWN WHEN THE DRUG WAS STARTED.
     Route: 048
  5. NEBIVOLOL [Concomitant]
     Active Substance: NEBIVOLOL
     Indication: Hypertension
     Dosage: NEBIVOLOL: 5MG AT 12:00.?THE START DATE OF THE DRUG IS UNKNOWN.
     Route: 048
  6. OLMESARTAN MEDOXOMIL [Concomitant]
     Active Substance: OLMESARTAN MEDOXOMIL
     Indication: Hypertension
     Dosage: OLMESARTAN: 20MG AT 8:00.?THE START DATE OF THE DRUG IS UNKNOWN.
     Route: 048
  7. CARDURA [Concomitant]
     Active Substance: DOXAZOSIN MESYLATE
     Indication: Hypertension
     Dosage: CARDURA: 2MG AT 20:00.?THE START DATE OF THE DRUG IS UNKNOWN
     Route: 048
  8. OMEPRAZOLE [Concomitant]
     Active Substance: OMEPRAZOLE
     Indication: Gastrooesophageal reflux disease
     Dosage: OMEPRAZOLO: 20MG.?THE START DATE OF THE DRUG IS UNKNOWN
     Route: 048
  9. HALCION [Concomitant]
     Active Substance: TRIAZOLAM
     Indication: Insomnia
     Dosage: HALCION: 250MCG AT 9:00 PM.?THE DATE OF START OF TAKING THE DRUG IS NOT KNOWN.
     Route: 048

REACTIONS (2)
  - Cerebral haemorrhage [Recovering/Resolving]
  - Drug hypersensitivity [Recovered/Resolved]

NARRATIVE: CASE EVENT DATE: 20241103
